FAERS Safety Report 9356578 (Version 1)
Quarter: 2013Q2

REPORT INFORMATION
  Report Type: Spontaneous
  Country: CH (occurrence: CH)
  Receive Date: 20130619
  Receipt Date: 20130619
  Transmission Date: 20140414
  Serious: Yes (Other)
  Sender: FDA-Public Use
  Company Number: PHHY2013CH061512

PATIENT
  Sex: Female

DRUGS (5)
  1. BILOL [Suspect]
  2. AMOXICILLIN / CLAVULANSAURE [Suspect]
  3. AUGMENTIN [Suspect]
  4. PADMA [Concomitant]
  5. VENORUTON [Concomitant]
     Dosage: 300 MG, UNK

REACTIONS (2)
  - Psoriasis [Unknown]
  - Tinnitus [Unknown]
